FAERS Safety Report 7360610-9 (Version None)
Quarter: 2011Q1

REPORT INFORMATION
  Report Type: 
  Country: None (occurrence: None)
  Receive Date: 20110310
  Receipt Date: 20110228
  Transmission Date: 20110831
  Serious: Yes (Other)
  Sender: FDA-Public Use
  Company Number: 840538

PATIENT
  Age: 59 Year
  Sex: Female
  Weight: 54 kg

DRUGS (12)
  1. MERREM [Concomitant]
  2. LANSOPRAZOLE [Concomitant]
  3. DEXAMETHASONE [Concomitant]
  4. (METRONIDAZOLE) [Concomitant]
  5. NYSTATIN [Concomitant]
  6. (ALLOPURINOL) [Concomitant]
  7. ONDANSETRON [Concomitant]
  8. CHLORHEXIDINE GLUCONATE [Concomitant]
  9. CYTARABINE [Suspect]
     Indication: PRODUCT USED FOR UNKNOWN INDICATION
     Dosage: 4800MG, 1 EVERY 12 HOURS(S), INTRAVENOUS
     Route: 042
  10. (AMSA PD) [Suspect]
     Indication: PRODUCT USED FOR UNKNOWN INDICATION
     Dosage: 240MG, 1 EVER 1 DAY(S), INTRAVENOUS
     Route: 042
  11. ACETAMINOPHEN [Concomitant]
  12. CITALOPRAM HYDROBROMIDE [Concomitant]

REACTIONS (12)
  - ASCITES [None]
  - OEDEMA PERIPHERAL [None]
  - VENOUS PRESSURE JUGULAR INCREASED [None]
  - BLOOD PRESSURE INCREASED [None]
  - LEFT VENTRICULAR DYSFUNCTION [None]
  - TRICUSPID VALVE INCOMPETENCE [None]
  - EJECTION FRACTION ABNORMAL [None]
  - RIGHT VENTRICULAR SYSTOLIC PRESSURE INCREASED [None]
  - DYSPNOEA EXERTIONAL [None]
  - PLEURAL EFFUSION [None]
  - WEIGHT INCREASED [None]
  - GENERALISED OEDEMA [None]
